FAERS Safety Report 21165411 (Version 2)
Quarter: 2024Q1

REPORT INFORMATION
  Report Type: Report from Study
  Country: US (occurrence: US)
  Receive Date: 20220803
  Receipt Date: 20240112
  Transmission Date: 20240409
  Serious: Yes (Other)
  Sender: FDA-Public Use
  Company Number: US-KYOWAKIRIN-2022BKK012087

PATIENT

DRUGS (1)
  1. POTELIGEO [Suspect]
     Active Substance: MOGAMULIZUMAB-KPKC
     Indication: Cutaneous T-cell lymphoma
     Dosage: UNK
     Route: 065

REACTIONS (6)
  - Cytopenia [Unknown]
  - Lymphopenia [Unknown]
  - Cellulitis [Unknown]
  - Neutropenia [Unknown]
  - Drug eruption [Unknown]
  - Anaemia [Unknown]
